FAERS Safety Report 9959041 (Version 1)
Quarter: 2014Q1

REPORT INFORMATION
  Report Type: Spontaneous
  Country: US (occurrence: None)
  Receive Date: 20140228
  Receipt Date: 20140228
  Transmission Date: 20141002
  Serious: Yes (Other)
  Sender: FDA-Public Use
  Company Number: None

PATIENT
  Age: 64 Year
  Sex: Female
  Weight: 70.31 kg

DRUGS (8)
  1. TECFIDERA [Suspect]
     Indication: MULTIPLE SCLEROSIS
     Route: 048
     Dates: start: 20140131, end: 20140216
  2. SYNTHROID [Concomitant]
  3. FLOMAX [Concomitant]
  4. MICARDIS [Concomitant]
  5. VERAPAMIL [Concomitant]
  6. TOPAMAX [Concomitant]
  7. CALCIUM [Concomitant]
  8. VITAMIN C [Concomitant]

REACTIONS (8)
  - Vomiting [None]
  - Nausea [None]
  - Decreased appetite [None]
  - Night sweats [None]
  - Dizziness [None]
  - Gastrointestinal pain [None]
  - Chills [None]
  - Dyspepsia [None]
